FAERS Safety Report 4599782-8 (Version None)
Quarter: 2005Q1

REPORT INFORMATION
  Report Type: 
  Country: None (occurrence: None)
  Receive Date: 20050303
  Receipt Date: 20050216
  Transmission Date: 20050727
  Serious: Yes (Hospitalization)
  Sender: FDA-Public Use
  Company Number: 203894

PATIENT
  Age: 58 Year
  Sex: Male
  Weight: 81.6475 kg

DRUGS (5)
  1. AVONEX [Suspect]
     Indication: MULTIPLE SCLEROSIS
     Dosage: 30 UG;QW;IM
     Route: 030
     Dates: start: 19970426
  2. AVONEX [Suspect]
     Indication: MULTIPLE SCLEROSIS
     Dosage: 30 UG;QW;IM
     Route: 030
     Dates: end: 20040701
  3. AVONEX [Suspect]
     Indication: MULTIPLE SCLEROSIS
     Dosage: 30 UG;QW;IM
     Route: 030
     Dates: start: 20040701
  4. DILANTIN [Concomitant]
  5. EYE DROPS [Concomitant]

REACTIONS (18)
  - ARTHRALGIA [None]
  - ASTHENIA [None]
  - BLADDER SPASM [None]
  - BLOOD PRESSURE INCREASED [None]
  - COMA [None]
  - CONSTIPATION [None]
  - FEELING ABNORMAL [None]
  - GASTROINTESTINAL HAEMORRHAGE [None]
  - GASTROOESOPHAGEAL REFLUX DISEASE [None]
  - HAEMORRHOIDS [None]
  - HEART RATE INCREASED [None]
  - HERPES VIRUS INFECTION [None]
  - HYPERHIDROSIS [None]
  - MEMORY IMPAIRMENT [None]
  - MYALGIA [None]
  - MYOCARDIAL INFARCTION [None]
  - RETCHING [None]
  - STRESS [None]
